FAERS Safety Report 22520995 (Version 1)
Quarter: 2023Q2

REPORT INFORMATION
  Report Type: Spontaneous
  Country: US (occurrence: None)
  Receive Date: 20230602
  Receipt Date: 20230602
  Transmission Date: 20230721
  Serious: Yes (Hospitalization)
  Sender: FDA-Public Use
  Company Number: None

PATIENT
  Sex: Male

DRUGS (2)
  1. OPSUMIT [Suspect]
     Active Substance: MACITENTAN
     Indication: Pulmonary arterial hypertension
     Dosage: FREQUENCY : DAILY;?
     Route: 048
     Dates: start: 20200826
  2. ORENITRAM [Suspect]
     Active Substance: TREPROSTINIL
     Dosage: 10MG DAILY ORAL

REACTIONS (6)
  - Product use issue [None]
  - Therapy interrupted [None]
  - Pneumonia [None]
  - Influenza [None]
  - Anxiety [None]
  - Secretion discharge [None]
